FAERS Safety Report 16013890 (Version 1)
Quarter: 2019Q1

REPORT INFORMATION
  Report Type: Spontaneous
  Country: US (occurrence: US)
  Receive Date: 20190227
  Receipt Date: 20190227
  Transmission Date: 20190418
  Serious: No
  Sender: FDA-Public Use
  Company Number: US-SA-2019SA055857

PATIENT
  Sex: Male
  Weight: 81 kg

DRUGS (1)
  1. CLOPIDOGREL BISULFATE. [Suspect]
     Active Substance: CLOPIDOGREL BISULFATE
     Indication: CEREBROVASCULAR ACCIDENT
     Dosage: UNK UNK, UNK

REACTIONS (5)
  - Lethargy [Unknown]
  - Petechiae [Unknown]
  - Asthenia [Unknown]
  - Contusion [Unknown]
  - Pallor [Unknown]
